FAERS Safety Report 5812858-X (Version None)
Quarter: 2008Q3

REPORT INFORMATION
  Report Type: 
  Country: None (occurrence: None)
  Receive Date: 20080714
  Receipt Date: 20080703
  Transmission Date: 20090109
  Serious: Yes (Other)
  Sender: FDA-Public Use
  Company Number: SPV1-2008-01435

PATIENT
  Age: 55 Year
  Sex: Male

DRUGS (3)
  1. ADDERALL XR 30 [Suspect]
     Indication: ATTENTION DEFICIT/HYPERACTIVITY DISORDER
     Dates: end: 20071201
  2. CYMBALTA [Concomitant]
  3. LAMICTAL [Concomitant]

REACTIONS (2)
  - CARDIOMYOPATHY [None]
  - GASTROINTESTINAL STROMAL TUMOUR [None]
